FAERS Safety Report 19806933 (Version 1)
Quarter: 2021Q3

REPORT INFORMATION
  Report Type: Spontaneous
  Country: DE (occurrence: DE)
  Receive Date: 20210909
  Receipt Date: 20210909
  Transmission Date: 20211014
  Serious: Yes (Death)
  Sender: FDA-Public Use
  Company Number: DE-ROCHE-2905045

PATIENT
  Sex: Female

DRUGS (4)
  1. CYCLOPHOSPHAMID [Suspect]
     Active Substance: CYCLOPHOSPHAMIDE
     Indication: TRIPLE NEGATIVE BREAST CANCER
     Dosage: 6 ADMINISTRATIONS IN COMBINATION WITH EPIRUBICIN, TECENTRIQ AND CARBOPLATIN
     Route: 065
  2. TECENTRIQ [Suspect]
     Active Substance: ATEZOLIZUMAB
     Indication: TRIPLE NEGATIVE BREAST CANCER
     Dosage: 6 ADMINISTRATIONS IN COMBINATION WITH CYCLOPHOSPHAMID, TECENTRIQ AND EPIRUBICIN
     Route: 065
  3. CARBOPLATIN. [Suspect]
     Active Substance: CARBOPLATIN
     Indication: TRIPLE NEGATIVE BREAST CANCER
     Dosage: 6 ADMINISTRATIONS IN COMBINATION WITH CYCLOPHOSPHAMID, TECENTRIQ AND EPIRUBICIN
     Route: 065
  4. EPIRUBICIN [Suspect]
     Active Substance: EPIRUBICIN
     Indication: TRIPLE NEGATIVE BREAST CANCER
     Dosage: 6 ADMINISTRATIONS IN COMBINATION WITH CYCLOPHOSPHAMID, TECENTRIQ AND CARBOPLATIN
     Route: 065

REACTIONS (4)
  - Pericarditis [Fatal]
  - Off label use [Unknown]
  - Sepsis [Fatal]
  - Intentional product use issue [Unknown]
